FAERS Safety Report 16137418 (Version 3)
Quarter: 2025Q2

REPORT INFORMATION
  Report Type: Spontaneous
  Country: IT (occurrence: IT)
  Receive Date: 20190330
  Receipt Date: 20250405
  Transmission Date: 20250717
  Serious: Yes (Hospitalization, Other)
  Sender: AUROBINDO
  Company Number: IT-AUROBINDO-AUR-APL-2019-015619

PATIENT
  Age: 63 Year
  Sex: Female

DRUGS (3)
  1. ALPRAZOLAM [Suspect]
     Active Substance: ALPRAZOLAM
     Indication: Mixed anxiety and depressive disorder
     Route: 048
     Dates: start: 20190312
  2. BROMAZEPAM [Suspect]
     Active Substance: BROMAZEPAM
     Indication: Mixed anxiety and depressive disorder
     Route: 048
     Dates: start: 20190312
  3. ZOLPIDEM [Suspect]
     Active Substance: ZOLPIDEM TARTRATE
     Indication: Mixed anxiety and depressive disorder
     Route: 048
     Dates: start: 20190312

REACTIONS (4)
  - Drug abuse [Unknown]
  - Intentional product misuse [Unknown]
  - Sedation [Recovering/Resolving]
  - Fall [Recovering/Resolving]

NARRATIVE: CASE EVENT DATE: 20190312
